FAERS Safety Report 8351393-4 (Version None)
Quarter: 2012Q2

REPORT INFORMATION
  Report Type: 
  Country: None (occurrence: None)
  Receive Date: 20120510
  Receipt Date: 20120502
  Transmission Date: 20120825
  Serious: Yes (Hospitalization, Disabling, Other)
  Sender: FDA-Public Use
  Company Number: US-MERCK-1201USA00783

PATIENT
  Age: 47 Year
  Sex: Female
  Weight: 86 kg

DRUGS (15)
  1. FOSAMAX [Suspect]
     Indication: POLYARTHRITIS
     Route: 048
     Dates: start: 19960301, end: 20090601
  2. DAPRIL [Concomitant]
     Route: 065
  3. DIDRONEL [Concomitant]
     Route: 065
  4. CALCIUM (UNSPECIFIED) [Concomitant]
     Route: 065
  5. VITAMIN D (UNSPECIFIED) [Concomitant]
     Route: 065
  6. FOSAMAX [Suspect]
     Indication: OSTEOPOROSIS
     Route: 048
     Dates: start: 19960301, end: 20090601
  7. PLAQUENIL [Concomitant]
     Route: 065
     Dates: end: 19980101
  8. FOSAMAX [Suspect]
     Route: 048
  9. FOSAMAX [Suspect]
     Route: 048
     Dates: start: 20080301, end: 20090601
  10. HYDROXYCHLOROQUINE SULFATE [Concomitant]
     Route: 065
  11. TETRACYCLINE [Concomitant]
     Route: 065
  12. FOSAMAX [Suspect]
     Route: 048
     Dates: start: 20080301, end: 20090601
  13. FOSAMAX [Suspect]
     Route: 048
  14. DAYPRO [Concomitant]
     Route: 065
  15. NONSTEROIDAL ANTI-INFLAMMATORY DRUG (UNSPECIFIED) [Concomitant]
     Route: 065

REACTIONS (34)
  - FEMUR FRACTURE [None]
  - MIGRAINE WITH AURA [None]
  - OFF LABEL USE [None]
  - FIBROCYSTIC BREAST DISEASE [None]
  - CARPAL TUNNEL SYNDROME [None]
  - ADVERSE DRUG REACTION [None]
  - ARTHRALGIA [None]
  - WEIGHT INCREASED [None]
  - FALL [None]
  - PHOTOSENSITIVITY REACTION [None]
  - SYSTEMIC LUPUS ERYTHEMATOSUS [None]
  - DIVERTICULITIS [None]
  - INSOMNIA [None]
  - VISUAL FIELD DEFECT [None]
  - TINEA INFECTION [None]
  - POOR QUALITY SLEEP [None]
  - PLANTAR FASCIITIS [None]
  - CONSTIPATION [None]
  - ANAEMIA POSTOPERATIVE [None]
  - DRUG INEFFECTIVE [None]
  - PAIN IN EXTREMITY [None]
  - OSTEOARTHRITIS [None]
  - FOOT DEFORMITY [None]
  - RETINAL TOXICITY [None]
  - DRY EYE [None]
  - BLADDER DISORDER [None]
  - BLEPHAROSPASM [None]
  - FATIGUE [None]
  - OVERDOSE [None]
  - ESSENTIAL HYPERTENSION [None]
  - MUSCLE SPASMS [None]
  - IMPAIRED HEALING [None]
  - STRESS [None]
  - ECCHYMOSIS [None]
